FAERS Safety Report 19632907 (Version 2)
Quarter: 2021Q3

REPORT INFORMATION
  Report Type: Report from Study
  Country: None (occurrence: US)
  Receive Date: 20210730
  Receipt Date: 20210805
  Transmission Date: 20211014
  Serious: Yes (Hospitalization)
  Sender: FDA-Public Use
  Company Number: US-ABBVIE-21K-163-4011267-00

PATIENT
  Sex: Male
  Weight: 93.98 kg

DRUGS (5)
  1. COVID?19 VACCINE [Concomitant]
     Indication: COVID-19 IMMUNISATION
     Route: 030
     Dates: start: 202105, end: 202105
  2. HUMIRA [Suspect]
     Active Substance: ADALIMUMAB
     Indication: PSORIASIS
     Route: 058
     Dates: start: 2020
  3. ATORVASTATIN [Concomitant]
     Active Substance: ATORVASTATIN
     Indication: BLOOD CHOLESTEROL INCREASED
  4. POTASSIUM CITRATE. [Concomitant]
     Active Substance: POTASSIUM CITRATE
     Indication: NEPHROLITHIASIS
  5. COVID?19 VACCINE [Concomitant]
     Route: 030
     Dates: start: 202106, end: 202106

REACTIONS (7)
  - Back pain [Recovering/Resolving]
  - Arthralgia [Recovering/Resolving]
  - Dyspnoea [Recovering/Resolving]
  - Pain in extremity [Recovering/Resolving]
  - Muscular weakness [Unknown]
  - Choking [Recovering/Resolving]
  - Cough [Recovering/Resolving]

NARRATIVE: CASE EVENT DATE: 2021
